FAERS Safety Report 7272508-5 (Version None)
Quarter: 2011Q1

REPORT INFORMATION
  Report Type: 
  Country: None (occurrence: None)
  Receive Date: 20110203
  Receipt Date: 20110125
  Transmission Date: 20110831
  Serious: Yes (Hospitalization)
  Sender: FDA-Public Use
  Company Number: GR-ROCHE-755820

PATIENT
  Sex: Female

DRUGS (3)
  1. BONIVA [Suspect]
     Route: 048
     Dates: start: 20100526
  2. BONIVA [Suspect]
     Route: 048
     Dates: start: 20101001
  3. BONIVA [Suspect]
     Route: 048
     Dates: start: 20100401

REACTIONS (5)
  - VOMITING [None]
  - GASTROENTERITIS [None]
  - PYREXIA [None]
  - DIARRHOEA [None]
  - GASTROINTESTINAL DISORDER [None]
